FAERS Safety Report 7841373-7 (Version None)
Quarter: 2011Q4

REPORT INFORMATION
  Report Type: 
  Country: None (occurrence: None)
  Receive Date: 20111025
  Receipt Date: 20111018
  Transmission Date: 20120403
  Serious: Yes (Death, Hospitalization, Other)
  Sender: FDA-Public Use
  Company Number: JP-CEPHALON-2011002320

PATIENT
  Sex: Male
  Weight: 45 kg

DRUGS (22)
  1. BENDAMUSTINE HCL [Suspect]
     Indication: MANTLE CELL LYMPHOMA
     Route: 042
     Dates: start: 20110106, end: 20110107
  2. ASPIRIN [Concomitant]
     Dates: start: 20091029, end: 20110506
  3. BROTIZOLAM [Concomitant]
     Dates: start: 20110402, end: 20110405
  4. IBUPROFEN [Concomitant]
     Dates: start: 20110331, end: 20110331
  5. HUMAN RED BLOOD CELLS [Concomitant]
     Dates: start: 20110107, end: 20110501
  6. BENDAMUSTINE HCL [Suspect]
     Route: 042
     Dates: start: 20110428, end: 20110429
  7. PLATELETS, CONCENTRATED [Concomitant]
     Dates: start: 20110107, end: 20110402
  8. FLUCONAZOLE [Concomitant]
     Dates: start: 20110114, end: 20110506
  9. BISOPROLOL FUMARATE [Concomitant]
     Dates: start: 20091029, end: 20110506
  10. MAGNESIUM OXIDE [Concomitant]
     Dates: start: 20110108, end: 20110506
  11. CHLORPHENIRAMINE MALEATE [Concomitant]
     Dates: start: 20110331, end: 20110331
  12. ZOLPIDEM TARTRATE [Concomitant]
     Dates: start: 20110506, end: 20110506
  13. FAMOTIDINE [Concomitant]
     Dates: start: 20091029, end: 20110506
  14. SULFAMETHOXAZOLE AND TRIMETHOPRIM [Concomitant]
     Dates: start: 20100615, end: 20110506
  15. APREPITANT [Concomitant]
     Dates: start: 20110106, end: 20110430
  16. SHAKUYAKUKANZOUTOU [Concomitant]
     Dates: start: 20110109
  17. BENDAMUSTINE HCL [Suspect]
     Route: 042
     Dates: start: 20110203, end: 20110204
  18. BENDAMUSTINE HCL [Suspect]
     Route: 042
     Dates: start: 20110303, end: 20110304
  19. PITAVASTATIN CALCIUM [Concomitant]
     Dates: start: 20091029, end: 20110506
  20. RITUXIMAB [Concomitant]
     Dates: start: 20110331, end: 20110331
  21. BENDAMUSTINE HCL [Suspect]
     Route: 042
     Dates: start: 20110331, end: 20110401
  22. ALLOPURINOL [Concomitant]
     Dates: start: 20100209, end: 20110412

REACTIONS (9)
  - FEBRILE NEUTROPENIA [None]
  - HYPERURICAEMIA [None]
  - NEUTROPENIA [None]
  - LYMPHOCYTE COUNT DECREASED [None]
  - HAEMORRHAGIC CEREBRAL INFARCTION [None]
  - PLATELET COUNT DECREASED [None]
  - DISSEMINATED INTRAVASCULAR COAGULATION [None]
  - NEUTROPHIL COUNT DECREASED [None]
  - WHITE BLOOD CELL COUNT DECREASED [None]
